FAERS Safety Report 10256542 (Version 1)
Quarter: 2014Q2

REPORT INFORMATION
  Report Type: Report from Study
  Country: US (occurrence: US)
  Receive Date: 20140624
  Receipt Date: 20140624
  Transmission Date: 20141212
  Serious: Yes (Other)
  Sender: FDA-Public Use
  Company Number: PHEH2014US012572

PATIENT
  Age: 40 Year
  Sex: Male

DRUGS (2)
  1. EXTAVIA [Suspect]
     Indication: MULTIPLE SCLEROSIS
     Dosage: WEEKS 1-2: 0.0625 MG (0.25ML), QOD
     Route: 058
     Dates: start: 20140522
  2. EXTAVIA [Suspect]
     Dosage: WEEKS 3-4: 0.125 MG (0.5ML), QOD
     Route: 058

REACTIONS (6)
  - Gait disturbance [Not Recovered/Not Resolved]
  - Condition aggravated [Not Recovered/Not Resolved]
  - Asthenia [Not Recovered/Not Resolved]
  - Headache [Not Recovered/Not Resolved]
  - Blood pressure increased [Not Recovered/Not Resolved]
  - Injection site haemorrhage [Not Recovered/Not Resolved]
